FAERS Safety Report 13663361 (Version 1)
Quarter: 2017Q2

REPORT INFORMATION
  Report Type: Spontaneous
  Country: US (occurrence: US)
  Receive Date: 20170619
  Receipt Date: 20170619
  Transmission Date: 20170830
  Serious: No
  Sender: FDA-Public Use
  Company Number: US-AUROBINDO-AUR-APU-2017-33028

PATIENT
  Sex: Female

DRUGS (1)
  1. OLANZAPINE TABLETS 5MG [Suspect]
     Active Substance: OLANZAPINE
     Indication: ANXIETY
     Dosage: 1 DF, DAILY
     Route: 065
     Dates: start: 20170301

REACTIONS (3)
  - Impaired driving ability [Not Recovered/Not Resolved]
  - Loss of personal independence in daily activities [Not Recovered/Not Resolved]
  - Dizziness [Not Recovered/Not Resolved]
